FAERS Safety Report 12953584 (Version 1)
Quarter: 2016Q4

REPORT INFORMATION
  Report Type: Spontaneous
  Country: AU (occurrence: AU)
  Receive Date: 20161117
  Receipt Date: 20161117
  Transmission Date: 20170207
  Serious: Yes (Hospitalization)
  Sender: FDA-Public Use
  Company Number: AU-ABBVIE-16P-008-1783802-00

PATIENT
  Age: 13 Year
  Sex: Female

DRUGS (1)
  1. VALPROATE SODIUM. [Suspect]
     Active Substance: VALPROATE SODIUM
     Indication: PRODUCT USED FOR UNKNOWN INDICATION
     Route: 065

REACTIONS (10)
  - Anxiety [Unknown]
  - Growth retardation [Unknown]
  - Bruxism [Unknown]
  - Speech disorder developmental [Unknown]
  - Tremor [Unknown]
  - Seizure [Unknown]
  - Motor dysfunction [Unknown]
  - Drug ineffective [Unknown]
  - Gait disturbance [Unknown]
  - Rett syndrome [Unknown]
